FAERS Safety Report 17902483 (Version 4)
Quarter: 2021Q2

REPORT INFORMATION
  Report Type: Other
  Country: IT (occurrence: IT)
  Receive Date: 20200617
  Receipt Date: 20210419
  Transmission Date: 20210717
  Serious: Yes (Death, Hospitalization)
  Sender: FDA-Public Use
  Company Number: IT-CELLTRION INC.-2020IT023286

PATIENT

DRUGS (17)
  1. DENOSUMAB [Concomitant]
     Active Substance: DENOSUMAB
     Dosage: UNK
  2. PERTUZUMAB. [Suspect]
     Active Substance: PERTUZUMAB
     Indication: BREAST CANCER
     Dosage: 840 MG, EVERY 3 WEEKS; MOST RECENT DOSE PRIOR TO THE EVENT 17/AUG/2017
     Route: 042
     Dates: start: 20170727
  3. LIBRADIN [BARNIDIPINE HYDROCHLORIDE] [Concomitant]
     Dosage: UNK
  4. CLORFENAMINA [CHLORPHENAMINE] [Concomitant]
     Active Substance: CHLORPHENIRAMINE
     Dosage: UNK
  5. GRANISETRON [Concomitant]
     Active Substance: GRANISETRON
     Dosage: ONGOING = NOT CHECKED
     Dates: start: 20170727, end: 20200220
  6. TRASTUZUMAB EMTANSINE [Suspect]
     Active Substance: ADO-TRASTUZUMAB EMTANSINE
     Indication: BREAST CANCER
     Dosage: 190 MG, EVERY 3 WEEKS; MOST RECENT DOSE PRIOR TO THE EVENT: 24/AUG/2018
     Route: 042
     Dates: start: 20180706
  7. KARVEZIDE [Concomitant]
     Active Substance: HYDROCHLOROTHIAZIDE\IRBESARTAN
     Dosage: UNK
  8. DOCETAXEL. [Suspect]
     Active Substance: DOCETAXEL
     Indication: BREAST CANCER
     Dosage: 110 MG, EVERY 3 WEEKS
     Route: 042
     Dates: start: 20170727
  9. LAPATINIB [Suspect]
     Active Substance: LAPATINIB
     Indication: BREAST CANCER
     Dosage: 1000 MG, DAILY
     Route: 048
     Dates: start: 20181219, end: 20190326
  10. VINORELBINE [Suspect]
     Active Substance: VINORELBINE TARTRATE
     Indication: BREAST CANCER
     Dosage: 35 MG, OTHER
     Route: 042
     Dates: start: 20190327, end: 20190620
  11. METOCLOPRAMIDE. [Concomitant]
     Active Substance: METOCLOPRAMIDE
     Dosage: UNK
  12. DESAMETASONE [Concomitant]
     Active Substance: DEXAMETHASONE
     Dosage: UNK
  13. CONGESCOR [Concomitant]
     Active Substance: BISOPROLOL
     Dosage: UNK
     Dates: start: 20190704, end: 20200329
  14. TRASTUZUMAB (UNKNOWN) [Suspect]
     Active Substance: TRASTUZUMAB
     Indication: BREAST CANCER
     Dosage: 470 MG, EVERY 3 WEEKS; MOST RECENT DOSE PRIOR TO THE EVENT 19/APR/2019
     Route: 041
  15. CAPECITABINE. [Suspect]
     Active Substance: CAPECITABINE
     Indication: BREAST CANCER
     Dosage: 2500 MG
     Route: 048
     Dates: start: 20181219, end: 20190326
  16. GEMCITABINE. [Suspect]
     Active Substance: GEMCITABINE
     Indication: BREAST CANCER
     Dosage: 1400 MG, OTHER
     Route: 042
     Dates: start: 20190627
  17. RANITIDINE. [Concomitant]
     Active Substance: RANITIDINE
     Dosage: UNK

REACTIONS (2)
  - Overdose [Unknown]
  - Breast cancer [Fatal]

NARRATIVE: CASE EVENT DATE: 20200316
